FAERS Safety Report 17443703 (Version 2)
Quarter: 2020Q2

REPORT INFORMATION
  Report Type: Spontaneous
  Country: US (occurrence: US)
  Receive Date: 20200221
  Receipt Date: 20200403
  Transmission Date: 20200713
  Serious: No
  Sender: FDA-Public Use
  Company Number: US-ASTRAZENECA-2020SE14161

PATIENT
  Sex: Female
  Weight: 86.6 kg

DRUGS (13)
  1. REPAGLINDE [Concomitant]
     Route: 048
  2. DICYCLOMINE [Concomitant]
     Active Substance: DICYCLOMINE HYDROCHLORIDE
     Indication: ABDOMINAL DISCOMFORT
     Dosage: 10.0MG UNKNOWN
     Route: 065
  3. TAMOXIFEN [Suspect]
     Active Substance: TAMOXIFEN
     Route: 048
  4. CORTISONE SHOT [Concomitant]
     Active Substance: HYDROCORTISONE
  5. LOVASTATIN. [Concomitant]
     Active Substance: LOVASTATIN
     Indication: BLOOD CHOLESTEROL INCREASED
  6. HUMALOG [Concomitant]
     Active Substance: INSULIN LISPRO
     Dosage: 3 TIMES PER DAY DEPENDING ON HER BLOOD SUGAR
     Route: 065
  7. INVOKANA [Concomitant]
     Active Substance: CANAGLIFLOZIN
     Indication: LIVER DISORDER
     Route: 065
  8. SPIRLNOLACTONE [Concomitant]
     Indication: LIVER DISORDER
     Dosage: 25.0MG UNKNOWN
     Route: 065
  9. BYDUREON BCISE [Suspect]
     Active Substance: EXENATIDE
     Indication: DIABETES MELLITUS
     Route: 058
  10. INSULIN [Concomitant]
     Active Substance: INSULIN NOS
  11. INVOKANA [Concomitant]
     Active Substance: CANAGLIFLOZIN
     Indication: BLOOD GLUCOSE
     Route: 065
  12. REPAGLINDE [Concomitant]
     Route: 048
  13. PROTONICS [Concomitant]
     Indication: OESOPHAGEAL DISORDER
     Route: 048

REACTIONS (9)
  - Blood glucose increased [Not Recovered/Not Resolved]
  - Fall [Recovered/Resolved]
  - Device leakage [Unknown]
  - Injection site haemorrhage [Unknown]
  - Incorrect dose administered by device [Unknown]
  - Hepatic cirrhosis [Unknown]
  - Arthralgia [Not Recovered/Not Resolved]
  - Platelet count abnormal [Unknown]
  - Pain [Unknown]
